FAERS Safety Report 7820755-3 (Version None)
Quarter: 2011Q4

REPORT INFORMATION
  Report Type: 
  Country: None (occurrence: None)
  Receive Date: 20111018
  Receipt Date: 20111012
  Transmission Date: 20120403
  Serious: Yes (Hospitalization, Other)
  Sender: FDA-Public Use
  Company Number: JP-B.I. PHARMACEUTICALS,INC./RIDGEFIELD-2011-BP-19281NB

PATIENT
  Sex: Female

DRUGS (14)
  1. ARICEPT [Concomitant]
     Dosage: 5 MG
     Route: 048
  2. HALOPERIDOL [Concomitant]
     Dosage: 2.25 MG
     Route: 065
  3. LEVOTOMIN [Concomitant]
     Dosage: 25 MG
     Route: 048
  4. NITRAZEPAM [Concomitant]
     Dosage: 10 MG
     Route: 048
  5. DEZOLAM [Concomitant]
     Dosage: 1 MG
     Route: 048
  6. FLUNITRAZEPAM [Concomitant]
     Dosage: 2 MG
     Route: 048
  7. PRADAXA [Suspect]
     Indication: ATRIAL FIBRILLATION
     Dosage: 300 MG
     Route: 048
     Dates: start: 20110502, end: 20110711
  8. NELUROLEN [Concomitant]
     Route: 048
  9. ROHYPNOL [Concomitant]
     Dosage: 2 MG
     Route: 048
  10. TRIHEXIN [Concomitant]
     Dosage: 6 MG
     Route: 048
  11. TRIHEXYPHENIDYL HCL [Concomitant]
     Dosage: 6 MG
     Route: 048
  12. SENNOSIDE [Concomitant]
     Dosage: 24 MG
     Route: 048
  13. PURSENNID [Concomitant]
     Dosage: 24 MG
     Route: 048
  14. FERROUS SULFATE TAB [Concomitant]
     Dosage: 105 MG
     Route: 048

REACTIONS (4)
  - ANAEMIA [None]
  - HEPATIC CANCER METASTATIC [None]
  - MELAENA [None]
  - LARGE INTESTINAL HAEMORRHAGE [None]
